FAERS Safety Report 8816947 (Version 1)
Quarter: 2012Q4

REPORT INFORMATION
  Report Type: Spontaneous
  Country: US (occurrence: None)
  Receive Date: 20121003
  Receipt Date: 20121003
  Transmission Date: 20130627
  Serious: Yes (Other)
  Sender: FDA-Public Use
  Company Number: None

PATIENT
  Sex: Male

DRUGS (1)
  1. HIZENTRA [Suspect]
     Indication: BRUTON^S AGAMMAGLOBULINAEMIA
     Route: 058
     Dates: start: 2000

REACTIONS (6)
  - Muscle twitching [None]
  - Tremor [None]
  - Lethargy [None]
  - Tension [None]
  - Fall [None]
  - Convulsion [None]
